FAERS Safety Report 9734727 (Version 1)
Quarter: 2013Q4

REPORT INFORMATION
  Report Type: Spontaneous
  Country: US (occurrence: US)
  Receive Date: 20131206
  Receipt Date: 20131206
  Transmission Date: 20140711
  Serious: Yes (Hospitalization)
  Sender: FDA-Public Use
  Company Number: US-BEH-2013039310

PATIENT
  Sex: Male
  Weight: 72 kg

DRUGS (11)
  1. PRILOSEC [Concomitant]
  2. VALTREX [Concomitant]
  3. ANDROGEL [Concomitant]
  4. HIZENTRA [Suspect]
     Indication: IMMUNODEFICIENCY COMMON VARIABLE
     Dosage: OVER 1-2 HOURS
     Route: 058
  5. KYTRIL [Concomitant]
     Dosage: 4 MG/4 ML
  6. PROTONIX DR [Concomitant]
  7. FENTANYL [Concomitant]
  8. ACYCLOVIR [Concomitant]
  9. MORPHINE SULFATE [Concomitant]
     Dosage: 10 MG/0.7 ML
  10. DIPHENHYDRAMINE [Concomitant]
  11. EPI-PEN [Concomitant]

REACTIONS (3)
  - Thrombosis [Unknown]
  - Vascular graft [Unknown]
  - Chemotherapy [Unknown]
